FAERS Safety Report 8444252-X (Version None)
Quarter: 2012Q2

REPORT INFORMATION
  Report Type: 
  Country: None (occurrence: None)
  Receive Date: 20120618
  Receipt Date: 20120611
  Transmission Date: 20120825
  Serious: Yes (Death, Other)
  Sender: FDA-Public Use
  Company Number: FR-ASTELLAS-2012EU003969

PATIENT
  Age: 29 Week
  Sex: Male
  Weight: 13.5 kg

DRUGS (2)
  1. MICAFUNGIN INJECTION [Suspect]
     Indication: PERITONITIS
  2. MICAFUNGIN INJECTION [Suspect]
     Indication: C-REACTIVE PROTEIN INCREASED
     Dosage: 6 MG, UNKNOWN/D
     Route: 042

REACTIONS (5)
  - SEPSIS [None]
  - SHOCK HAEMORRHAGIC [None]
  - SMALL INTESTINAL PERFORATION [None]
  - PERITONITIS [None]
  - GASTRIC PERFORATION [None]
